FAERS Safety Report 22350313 (Version 8)
Quarter: 2024Q2

REPORT INFORMATION
  Report Type: Report from Study
  Country: US (occurrence: US)
  Receive Date: 20230522
  Receipt Date: 20240416
  Transmission Date: 20240716
  Serious: Yes (Hospitalization, Other)
  Sender: FDA-Public Use
  Company Number: US-EXELIXIS-CABO-23062752

PATIENT
  Age: 71 Year
  Sex: Male

DRUGS (21)
  1. CABOMETYX [Suspect]
     Active Substance: CABOZANTINIB S-MALATE
     Indication: Metastatic renal cell carcinoma
     Dosage: 40 MG, QD
     Route: 048
     Dates: start: 20230329, end: 20230430
  2. CABOMETYX [Suspect]
     Active Substance: CABOZANTINIB S-MALATE
     Dosage: 40 MG, QD
     Route: 048
     Dates: start: 20230501
  3. CABOMETYX [Suspect]
     Active Substance: CABOZANTINIB S-MALATE
     Dosage: 40 MG, QD
     Route: 048
  4. CABOMETYX [Suspect]
     Active Substance: CABOZANTINIB S-MALATE
     Dosage: 40 MG, QD
     Route: 048
  5. CABOMETYX [Suspect]
     Active Substance: CABOZANTINIB S-MALATE
     Dosage: 20 MG, QD
     Route: 048
  6. CABOMETYX [Suspect]
     Active Substance: CABOZANTINIB S-MALATE
     Dosage: 20 MG, QD
     Route: 048
  7. CABOMETYX [Suspect]
     Active Substance: CABOZANTINIB S-MALATE
     Dosage: 20 MG, QD
     Route: 048
  8. CABOMETYX [Suspect]
     Active Substance: CABOZANTINIB S-MALATE
     Dosage: 20 MG FOR 2 DAYS AND THEN TAKE 40 MG EVERY THIRD DAY AND SOMETIME TOOK 40 MG TWO DAYS IN A ROW
  9. CABOMETYX [Suspect]
     Active Substance: CABOZANTINIB S-MALATE
     Dosage: 20 MG, QD
     Route: 048
     Dates: start: 20240401
  10. ELIQUIS [Suspect]
     Active Substance: APIXABAN
     Indication: Product used for unknown indication
     Dosage: UNK
     Dates: end: 20230508
  11. LOVENOX [Suspect]
     Active Substance: ENOXAPARIN SODIUM
     Indication: Product used for unknown indication
     Dosage: UNK
  12. OPDIVO [Concomitant]
     Active Substance: NIVOLUMAB
     Indication: Renal cell carcinoma
     Dosage: UNK
  13. ALBUTEROL SULFATE [Concomitant]
     Active Substance: ALBUTEROL SULFATE
  14. ONDANSETRON [Concomitant]
     Active Substance: ONDANSETRON
  15. ATORVASTATIN [Concomitant]
     Active Substance: ATORVASTATIN
  16. BREZTRI [Concomitant]
     Active Substance: BUDESONIDE\FORMOTEROL\GLYCOPYRROLATE
  17. FLOMAX [Concomitant]
     Active Substance: TAMSULOSIN HYDROCHLORIDE
  18. ATIVAN [Concomitant]
     Active Substance: LORAZEPAM
  19. LORAZEPAM [Concomitant]
     Active Substance: LORAZEPAM
  20. TAMSULOSIN HYDROCHLORIDE [Concomitant]
     Active Substance: TAMSULOSIN HYDROCHLORIDE
  21. LISINOPRIL [Concomitant]
     Active Substance: LISINOPRIL

REACTIONS (30)
  - Oropharyngeal blistering [Not Recovered/Not Resolved]
  - Sepsis [Not Recovered/Not Resolved]
  - Urinary tract infection [Recovered/Resolved]
  - Urinary tract obstruction [Unknown]
  - Renal haemorrhage [Not Recovered/Not Resolved]
  - Haemorrhage urinary tract [Not Recovered/Not Resolved]
  - Tongue discomfort [Recovered/Resolved]
  - Ear pain [Unknown]
  - Lactose intolerance [Not Recovered/Not Resolved]
  - Abdominal distension [Not Recovered/Not Resolved]
  - Oropharyngeal pain [Unknown]
  - Adverse drug reaction [Not Recovered/Not Resolved]
  - Taste disorder [Not Recovered/Not Resolved]
  - Dry mouth [Not Recovered/Not Resolved]
  - Fatigue [Not Recovered/Not Resolved]
  - Weight decreased [Not Recovered/Not Resolved]
  - Dysphonia [Not Recovered/Not Resolved]
  - Nausea [Not Recovered/Not Resolved]
  - Diarrhoea [Not Recovered/Not Resolved]
  - Palmar-plantar erythrodysaesthesia syndrome [Not Recovered/Not Resolved]
  - Stomatitis [Not Recovered/Not Resolved]
  - Abdominal pain upper [Not Recovered/Not Resolved]
  - COVID-19 [Not Recovered/Not Resolved]
  - Speech disorder [Not Recovered/Not Resolved]
  - Head discomfort [Not Recovered/Not Resolved]
  - Paraesthesia oral [Recovered/Resolved]
  - Drug intolerance [Unknown]
  - Tongue ulceration [Not Recovered/Not Resolved]
  - Product dose omission issue [Unknown]
  - Inappropriate schedule of product administration [Unknown]

NARRATIVE: CASE EVENT DATE: 20230401
